FAERS Safety Report 7331577-4 (Version None)
Quarter: 2011Q1

REPORT INFORMATION
  Report Type: 
  Country: None (occurrence: None)
  Receive Date: 20110304
  Receipt Date: 20101214
  Transmission Date: 20110831
  Serious: No
  Sender: FDA-Public Use
  Company Number: A0888664A

PATIENT
  Age: 39 Year
  Sex: Female
  Weight: 96.4 kg

DRUGS (1)
  1. LAMICTAL [Suspect]
     Route: 048
     Dates: start: 20100808, end: 20101107

REACTIONS (2)
  - MOUTH ULCERATION [None]
  - CANDIDIASIS [None]
